FAERS Safety Report 24958915 (Version 1)
Quarter: 2025Q1

REPORT INFORMATION
  Report Type: Other
  Country: IN (occurrence: IN)
  Receive Date: 20250212
  Receipt Date: 20250212
  Transmission Date: 20250408
  Serious: Yes (Death, Hospitalization, Other)
  Sender: ESJAY PHARMA
  Company Number: IN-ESJAY PHARMA-000260

PATIENT
  Age: 28 Year
  Sex: Female

DRUGS (5)
  1. IMATINIB [Suspect]
     Active Substance: IMATINIB
     Indication: Chronic myeloid leukaemia
  2. HYDROXYUREA [Concomitant]
     Active Substance: HYDROXYUREA
     Indication: Chronic myeloid leukaemia
  3. TRANEXAMIC ACID [Concomitant]
     Active Substance: TRANEXAMIC ACID
     Indication: Disseminated intravascular coagulation
  4. Eptacog-alfa [Concomitant]
     Indication: Disseminated intravascular coagulation
  5. IMATINIB [Suspect]
     Active Substance: IMATINIB
     Indication: Chronic myeloid leukaemia

REACTIONS (3)
  - Tumour lysis syndrome [Fatal]
  - Exposure during pregnancy [Unknown]
  - Multiple organ dysfunction syndrome [Unknown]
